FAERS Safety Report 4427583-X (Version None)
Quarter: 2004Q3

REPORT INFORMATION
  Report Type: 
  Country: None (occurrence: None)
  Receive Date: 20040816
  Receipt Date: 20040816
  Transmission Date: 20050211
  Serious: Yes (Hospitalization)
  Sender: FDA-Public Use
  Company Number: None

PATIENT
  Age: 50 Year
  Sex: Female

DRUGS (1)
  1. PENTOXIFYLLINE [Suspect]
     Indication: HEPATOPULMONARY SYNDROME
     Dosage: 400 MG BID PO
     Route: 048
     Dates: start: 20040510, end: 20040618

REACTIONS (3)
  - AMMONIA INCREASED [None]
  - ENCEPHALOPATHY [None]
  - MENTAL STATUS CHANGES [None]
